FAERS Safety Report 20079963 (Version 1)
Quarter: 2021Q4

REPORT INFORMATION
  Report Type: Spontaneous
  Country: US (occurrence: None)
  Receive Date: 20211116
  Receipt Date: 20211116
  Transmission Date: 20220303
  Serious: Yes (Hospitalization)
  Sender: FDA-Public Use
  Company Number: None

PATIENT
  Age: 69 Year
  Sex: Male

DRUGS (1)
  1. NIVESTYM [Suspect]
     Active Substance: FILGRASTIM-AAFI
     Dosage: OTHER FREQUENCY : DAILY FOR 3 DAYS ;?
     Route: 042
     Dates: start: 20210709

REACTIONS (2)
  - Bone marrow transplant [None]
  - Stem cell transplant [None]

NARRATIVE: CASE EVENT DATE: 20211013
